FAERS Safety Report 15399903 (Version 1)
Quarter: 2018Q3

REPORT INFORMATION
  Report Type: Spontaneous
  Country: DE (occurrence: DE)
  Receive Date: 20180919
  Receipt Date: 20180919
  Transmission Date: 20181010
  Serious: Yes (Life-Threatening)
  Sender: FDA-Public Use
  Company Number: DE-TEVA-2018-DE-956025

PATIENT
  Age: 64 Year
  Sex: Male
  Weight: 86 kg

DRUGS (1)
  1. VALSARTAN ABZ [Suspect]
     Active Substance: VALSARTAN
     Indication: CORONARY ARTERY DISEASE
     Dosage: 80 MILLIGRAM DAILY;
     Route: 048
     Dates: end: 201807

REACTIONS (1)
  - Prostate cancer [Not Recovered/Not Resolved]

NARRATIVE: CASE EVENT DATE: 201803
